FAERS Safety Report 23909850 (Version 1)
Quarter: 2024Q2

REPORT INFORMATION
  Report Type: Spontaneous
  Country: CA (occurrence: CA)
  Receive Date: 20240528
  Receipt Date: 20240528
  Transmission Date: 20240715
  Serious: Yes (Death, Other)
  Sender: FDA-Public Use
  Company Number: CA-FreseniusKabi-FK202408143

PATIENT
  Age: 39 Year
  Sex: Male
  Weight: 56 kg

DRUGS (1)
  1. PROPOFOL [Suspect]
     Active Substance: PROPOFOL
     Indication: Product used for unknown indication
     Dosage: FORM OF ADMIN-EMULSION
     Route: 042

REACTIONS (6)
  - Acute kidney injury [Fatal]
  - Hypertriglyceridaemia [Fatal]
  - Metabolic acidosis [Fatal]
  - Propofol infusion syndrome [Fatal]
  - Rhabdomyolysis [Fatal]
  - Ventricular tachycardia [Fatal]
